FAERS Safety Report 9886382 (Version 1)
Quarter: 2014Q1

REPORT INFORMATION
  Report Type: Spontaneous
  Country: GB (occurrence: GB)
  Receive Date: 20140210
  Receipt Date: 20140210
  Transmission Date: 20141002
  Serious: Yes (Hospitalization)
  Sender: FDA-Public Use
  Company Number: GB-PFIZER INC-2014036165

PATIENT
  Age: 75 Year
  Sex: 0

DRUGS (11)
  1. AMIODARONE HCL [Suspect]
     Dosage: 200 MG, 1X/DAY
     Route: 048
     Dates: start: 20131202
  2. LOSARTAN [Concomitant]
     Dosage: UNK
     Dates: start: 20131202
  3. METFORMIN [Concomitant]
     Dosage: UNK
  4. GLICLAZIDE [Concomitant]
     Dosage: UNK
  5. WARFARIN [Concomitant]
     Dosage: UNK
  6. ATORVASTATIN [Concomitant]
     Dosage: UNK
  7. ASPIRIN [Concomitant]
     Dosage: UNK
  8. LANSOPRAZOLE [Concomitant]
     Dosage: UNK
  9. BISOPROLOL [Concomitant]
     Dosage: UNK
  10. TRIMETHOPRIM [Concomitant]
     Dosage: UNK
  11. EXENATIDE [Concomitant]
     Dosage: UNK

REACTIONS (2)
  - Cough [Unknown]
  - Pain [Unknown]
